APPROVED DRUG PRODUCT: DOVONEX
Active Ingredient: CALCIPOTRIENE
Strength: 0.005% **Federal Register determination that product was not discontinued or withdrawn for safety or effectiveness reasons**
Dosage Form/Route: OINTMENT;TOPICAL
Application: N020273 | Product #001 | TE Code: AB
Applicant: LEO PHARMA AS
Approved: Dec 29, 1993 | RLD: Yes | RS: No | Type: RX